FAERS Safety Report 21285657 (Version 1)
Quarter: 2022Q3

REPORT INFORMATION
  Report Type: Spontaneous
  Country: US (occurrence: US)
  Receive Date: 20220902
  Receipt Date: 20220902
  Transmission Date: 20221027
  Serious: Yes (Other)
  Sender: FDA-Public Use
  Company Number: US-AVET LIFESCIENCES LTD-2022-AVET-000151

PATIENT
  Age: 32 Year
  Sex: Female

DRUGS (4)
  1. LABETALOL [Suspect]
     Active Substance: LABETALOL\LABETALOL HYDROCHLORIDE
     Indication: Hypertension
     Dosage: 50 MILLIGRAM (DOSE FLUCTUATED BETWEEN 50 MG AND 200 MG DAILY)
  2. LABETALOL [Suspect]
     Active Substance: LABETALOL\LABETALOL HYDROCHLORIDE
     Dosage: 200 MILLIGRAM (DOSE FLUCTUATED BETWEEN 50 MG AND 200 MG DAILY )
  3. BUPRENORPHINE [Suspect]
     Active Substance: BUPRENORPHINE
     Indication: Product used for unknown indication
     Dosage: 4 MILLIGRAM,  DAILY BEFORE PREGNANCY
  4. BUPRENORPHINE [Suspect]
     Active Substance: BUPRENORPHINE
     Dosage: 6 MILLIGRAM (INCREASED TO 6 MG DAILY BY TIME OF DELIVERY)

REACTIONS (3)
  - Foetal growth restriction [Unknown]
  - False positive investigation result [Unknown]
  - Exposure during pregnancy [Unknown]
